FAERS Safety Report 8417592-8 (Version None)
Quarter: 2012Q2

REPORT INFORMATION
  Report Type: 
  Country: None (occurrence: None)
  Receive Date: 20120606
  Receipt Date: 20120522
  Transmission Date: 20120825
  Serious: Yes (Other)
  Sender: FDA-Public Use
  Company Number: CHPA2012US011415

PATIENT
  Age: 86 Year
  Sex: Female

DRUGS (3)
  1. DRUG THERAPY NOS [Concomitant]
     Dosage: 3-4 PILLS, TID
  2. EXCEDRIN EXTRA STRENGTH TABLETS [Suspect]
     Indication: INTERVERTEBRAL DISC PROTRUSION
     Dosage: 1 DF, A DAY
     Route: 048
     Dates: start: 19620101
  3. EXCEDRIN BACK \+ BODY CAPLETS [Suspect]
     Indication: INTERVERTEBRAL DISC PROTRUSION
     Dosage: 1 DF, A DAY
     Route: 048
     Dates: start: 19620101

REACTIONS (7)
  - OFF LABEL USE [None]
  - DRUG ADMINISTRATION ERROR [None]
  - INCORRECT DRUG ADMINISTRATION DURATION [None]
  - ULCER HAEMORRHAGE [None]
  - UNDERDOSE [None]
  - TENDON INJURY [None]
  - ARTHRITIS [None]
